FAERS Safety Report 8286504-2 (Version None)
Quarter: 2012Q2

REPORT INFORMATION
  Report Type: 
  Country: None (occurrence: None)
  Receive Date: 20120411
  Receipt Date: 20120327
  Transmission Date: 20120825
  Serious: Yes (Hospitalization, Other)
  Sender: FDA-Public Use
  Company Number: 2012S1000355

PATIENT
  Age: 60 Year
  Sex: Female

DRUGS (8)
  1. STRONTIUM RANELATE [Concomitant]
  2. URSODIOL [Concomitant]
  3. PREGABALIN [Concomitant]
  4. EZETIMIBE [Concomitant]
  5. CALCIUM PIDOLATE [Concomitant]
  6. ALIPZA (PITAVASTATIN) [Suspect]
     Indication: HYPERCHOLESTEROLAEMIA
     Dosage: 2 MG;1X;PO
     Route: 048
     Dates: start: 20111201, end: 20120201
  7. PANTOPRAZOLE [Concomitant]
  8. CHOLESTYRAMINE [Concomitant]

REACTIONS (1)
  - HEPATITIS ACUTE [None]
